FAERS Safety Report 7426337-X (Version None)
Quarter: 2011Q2

REPORT INFORMATION
  Report Type: 
  Country: None (occurrence: None)
  Receive Date: 20110420
  Receipt Date: 20110413
  Transmission Date: 20111010
  Serious: Yes (Hospitalization)
  Sender: FDA-Public Use
  Company Number: B0713760A

PATIENT
  Age: 47 Year
  Sex: Female

DRUGS (4)
  1. VALTREX [Suspect]
     Indication: HERPES ZOSTER
     Dosage: 3000MG PER DAY
     Route: 048
     Dates: start: 20110124, end: 20110129
  2. VOLTAREN [Concomitant]
     Indication: ANALGESIC THERAPY
     Route: 048
     Dates: start: 20110124, end: 20110208
  3. SOFALCONE [Concomitant]
     Route: 048
  4. METHYCOBAL [Concomitant]
     Indication: ANALGESIC THERAPY
     Route: 065

REACTIONS (2)
  - HEPATITIS FULMINANT [None]
  - CIRCULATORY COLLAPSE [None]
